FAERS Safety Report 4940387-4 (Version None)
Quarter: 2006Q1

REPORT INFORMATION
  Report Type: 
  Country: None (occurrence: None)
  Receive Date: 20060310
  Receipt Date: 20060307
  Transmission Date: 20060701
  Serious: Yes (Life-Threatening)
  Sender: FDA-Public Use
  Company Number: AU-MERCK-0603AUS00048

PATIENT
  Age: 81 Year
  Sex: Female

DRUGS (3)
  1. FOSAMAX [Suspect]
     Indication: BONE DISORDER
     Route: 048
  2. ASPIRIN [Suspect]
     Indication: MYOCARDIAL ISCHAEMIA
     Route: 048
  3. OMEPRAZOLE [Concomitant]
     Route: 065

REACTIONS (3)
  - HAEMATEMESIS [None]
  - OESOPHAGITIS ULCERATIVE [None]
  - REFLUX OESOPHAGITIS [None]
